FAERS Safety Report 15871248 (Version 8)
Quarter: 2019Q1

REPORT INFORMATION
  Report Type: Spontaneous
  Country: US (occurrence: US)
  Receive Date: 20190126
  Receipt Date: 20190307
  Transmission Date: 20190417
  Serious: Yes (Hospitalization, Other)
  Sender: FDA-Public Use
  Company Number: US-UNITED THERAPEUTICS-UNT-2019-001269

PATIENT
  Age: 64 Year
  Sex: Female
  Weight: 103.86 kg

DRUGS (7)
  1. TYVASO [Suspect]
     Active Substance: TREPROSTINIL
     Dosage: 12 ?G, UNK
     Dates: start: 201901
  2. TYVASO [Suspect]
     Active Substance: TREPROSTINIL
     Dosage: UNK
  3. TYVASO [Suspect]
     Active Substance: TREPROSTINIL
     Indication: PULMONARY ARTERIAL HYPERTENSION
     Dosage: 18-54 MICROGRAMS, QID
     Dates: start: 20190110
  4. LETAIRIS [Concomitant]
     Active Substance: AMBRISENTAN
     Indication: PRODUCT USED FOR UNKNOWN INDICATION
     Route: 065
  5. TYVASO [Suspect]
     Active Substance: TREPROSTINIL
     Dosage: 6 ?G PER SESSION, UNK
  6. TYVASO [Suspect]
     Active Substance: TREPROSTINIL
     Dosage: 18 ?G, UNK
     Dates: start: 201901
  7. DILTIAZEM. [Concomitant]
     Active Substance: DILTIAZEM
     Indication: PRODUCT USED FOR UNKNOWN INDICATION
     Route: 065

REACTIONS (22)
  - Respiratory tract infection [Unknown]
  - Cardiac failure congestive [Unknown]
  - Renal failure [Unknown]
  - Sinus pain [Unknown]
  - Flatulence [Unknown]
  - Pain [Unknown]
  - Tinnitus [Unknown]
  - Fatigue [Unknown]
  - Hepatic enzyme increased [Unknown]
  - Myalgia [Unknown]
  - Pain in jaw [Unknown]
  - Paranasal sinus discomfort [Unknown]
  - Epistaxis [Unknown]
  - Oropharyngeal pain [Unknown]
  - Cough [Unknown]
  - Arthritis [Unknown]
  - Neck pain [Unknown]
  - Headache [Unknown]
  - Diarrhoea [Unknown]
  - Abdominal discomfort [Unknown]
  - Nasal congestion [Unknown]
  - Urinary tract infection [Unknown]

NARRATIVE: CASE EVENT DATE: 201901
